FAERS Safety Report 6253242-7 (Version None)
Quarter: 2009Q3

REPORT INFORMATION
  Report Type: 
  Country: None (occurrence: None)
  Receive Date: 20090701
  Receipt Date: 20090623
  Transmission Date: 20100115
  Serious: Yes (Hospitalization, Other)
  Sender: FDA-Public Use
  Company Number: IT-BAYER-200921694GPV

PATIENT
  Age: 20 Month
  Sex: Female
  Weight: 11 kg

DRUGS (4)
  1. ACETAMINOPHEN AND CODEINE PHOSPHATE [Suspect]
     Indication: SKIN LESION
     Dosage: AT RECOMMENDED DOSAGES
  2. KETOPROFEN [Suspect]
     Indication: SKIN ULCER
  3. VINCRISTINE [Suspect]
     Indication: NEPHROBLASTOMA
     Dosage: 3 CYCLES
     Route: 042
  4. DACTINOMYCIN [Suspect]
     Indication: NEPHROBLASTOMA
     Dosage: 2 CYCLES

REACTIONS (9)
  - ACUTE HEPATIC FAILURE [None]
  - ASCITES [None]
  - ASTERIXIS [None]
  - COMA [None]
  - ENCEPHALOPATHY [None]
  - HAEMATEMESIS [None]
  - HAEMORRHAGE SUBCUTANEOUS [None]
  - PORTAL HYPERTENSION [None]
  - RESPIRATORY FAILURE [None]
